FAERS Safety Report 10925120 (Version 2)
Quarter: 2015Q2

REPORT INFORMATION
  Report Type: Spontaneous
  Country: US (occurrence: US)
  Receive Date: 20150318
  Receipt Date: 20150524
  Transmission Date: 20150821
  Serious: No
  Sender: FDA-Public Use
  Company Number: US-JNJFOC-20130213443

PATIENT
  Age: 33 Year
  Sex: Female
  Weight: 49.9 kg

DRUGS (5)
  1. NIZORAL A-D [Suspect]
     Active Substance: KETOCONAZOLE
     Indication: DERMATITIS
     Dosage: 1 TIME PER DAY, 3-4 TIMES PER WEEK
     Route: 061
     Dates: start: 20120801, end: 20130301
  2. NIZORAL A-D [Suspect]
     Active Substance: KETOCONAZOLE
     Indication: DERMATITIS
     Dosage: 1 TIME PER DAY, 3-4 TIMES PER WEEK
     Route: 061
  3. CLOBEX [Concomitant]
     Active Substance: CLOBETASOL PROPIONATE
     Indication: SEBORRHOEA
     Route: 065
     Dates: start: 20070117
  4. ZINCOFAX [Concomitant]
     Indication: PRODUCT USED FOR UNKNOWN INDICATION
     Route: 065
  5. NIZORAL A-D [Suspect]
     Active Substance: KETOCONAZOLE
     Route: 061

REACTIONS (4)
  - Product use issue [Not Recovered/Not Resolved]
  - Inappropriate schedule of drug administration [Unknown]
  - Therapeutic response unexpected [Unknown]
  - Dermatitis [Unknown]

NARRATIVE: CASE EVENT DATE: 201208
